FAERS Safety Report 5708826-9 (Version None)
Quarter: 2008Q2

REPORT INFORMATION
  Report Type: 
  Country: None (occurrence: None)
  Receive Date: 20080416
  Receipt Date: 20080324
  Transmission Date: 20081010
  Serious: Yes (Hospitalization)
  Sender: FDA-Public Use
  Company Number: 080307309

PATIENT
  Age: 61 Year
  Sex: Female

DRUGS (13)
  1. MUCINEX D [Suspect]
     Indication: SINUS CONGESTION
     Dosage: 1TABL, X 1 DOSE, ORAL
     Route: 048
     Dates: start: 20080220, end: 20080220
  2. SPIRIVA [Concomitant]
  3. SINGULAIR [Concomitant]
  4. ZETIA [Concomitant]
  5. LESCOL XL (FLUVASTATIN SODIUM EXTENDED-RELEASE TABLETS) [Concomitant]
  6. RHINOCORT (BUDENOSIDE) [Concomitant]
  7. DEPAKOTE ER (DIVALPROEX SODIUM EXTENDED-RELEASE TABLETS) [Concomitant]
  8. TRAZODONE HCL [Concomitant]
  9. ALBUTEROL [Concomitant]
  10. SOMA [Concomitant]
  11. MOBIC [Concomitant]
  12. PERCOCET [Concomitant]
  13. FLOVENT [Concomitant]

REACTIONS (5)
  - BLOOD POTASSIUM DECREASED [None]
  - CHEST DISCOMFORT [None]
  - CONVULSION [None]
  - DYSPNOEA [None]
  - TREMOR [None]
